FAERS Safety Report 10788036 (Version 1)
Quarter: 2015Q1

REPORT INFORMATION
  Report Type: Spontaneous
  Country: US (occurrence: None)
  Receive Date: 20150211
  Receipt Date: 20150211
  Transmission Date: 20150721
  Serious: Yes (Hospitalization)
  Sender: FDA-Public Use
  Company Number: None

PATIENT
  Age: 58 Year
  Sex: Male
  Weight: 81.6 kg

DRUGS (1)
  1. SUNITINIB MALATE (SU011248 L-MALATE) [Suspect]
     Active Substance: SUNITINIB MALATE
     Dates: start: 20150122

REACTIONS (5)
  - Oedema peripheral [None]
  - Respiratory distress [None]
  - Pleural effusion [None]
  - Bronchial obstruction [None]
  - Atelectasis [None]

NARRATIVE: CASE EVENT DATE: 20150131
